FAERS Safety Report 23904397 (Version 1)
Quarter: 2024Q2

REPORT INFORMATION
  Report Type: Spontaneous
  Country: CN (occurrence: CN)
  Receive Date: 20240527
  Receipt Date: 20240527
  Transmission Date: 20240716
  Serious: Yes (Death)
  Sender: FDA-Public Use
  Company Number: CN-AMNEAL PHARMACEUTICALS-2024-AMRX-01879

PATIENT
  Age: 38 Year
  Sex: Male

DRUGS (6)
  1. TEMOZOLOMIDE [Suspect]
     Active Substance: TEMOZOLOMIDE
     Indication: Glioma
     Dosage: 150-200MG/M2/DAY
     Route: 048
     Dates: start: 201703
  2. TEMOZOLOMIDE [Suspect]
     Active Substance: TEMOZOLOMIDE
     Dosage: 100 MG/M2/DAY ON A 28-DAY CYCLE, ORALLY FOR 7 DAYS ON WITH 7 DAYS OFF),
     Route: 048
     Dates: start: 201712
  3. BEVACIZUMAB [Concomitant]
     Active Substance: BEVACIZUMAB
     Indication: Glioma
     Dosage: (10 MG/KG EVERY 2 WEEKS)
     Route: 065
     Dates: start: 201706
  4. BEVACIZUMAB [Concomitant]
     Active Substance: BEVACIZUMAB
     Dosage: UNK
     Route: 065
     Dates: start: 201809
  5. POLYINOSINIC POLYCYTIDYLIC ACID [Concomitant]
     Indication: Glioma
     Dosage: 1-2MG PER INJECTION, ONCE DAILY (QD), FOR A TOTAL OF 5 INJECTIONS.
     Route: 065
     Dates: start: 201811
  6. GRANULOCYTE-MACROPHAGE COLONY-STIMULATING FACTOR [Concomitant]
     Active Substance: GRANULOCYTE-MACROPHAGE COLONY-STIMULATING FACTOR
     Indication: Glioma
     Dosage: 125 MG/M2 PER INJECTION, EVERY OTHER DAY, FOR 7 INJECTIONS
     Route: 065

REACTIONS (1)
  - Astrocytoma malignant [Fatal]
